FAERS Safety Report 8523801 (Version 4)
Quarter: 2012Q4

REPORT INFORMATION
  Report Type: Report from Study
  Country: US (occurrence: US)
  Receive Date: 20120420
  Receipt Date: 20121005
  Transmission Date: 20130627
  Serious: Yes (Hospitalization)
  Sender: FDA-Public Use
  Company Number: US-ROCHE-1058581

PATIENT
  Age: 54 Year
  Sex: Male
  Weight: 88.5 kg

DRUGS (4)
  1. ZELBORAF [Suspect]
     Indication: MALIGNANT MELANOMA
     Dosage: date of last dose prior to sae: 08/apr/2012
     Route: 048
     Dates: start: 20120305, end: 20120408
  2. ZELBORAF [Suspect]
     Route: 065
     Dates: start: 20120501
  3. LOVASTATIN [Concomitant]
  4. BENADRYL [Concomitant]
     Route: 065
     Dates: start: 20120402

REACTIONS (1)
  - Liver injury [Recovered/Resolved]
